FAERS Safety Report 13769269 (Version 1)
Quarter: 2017Q3

REPORT INFORMATION
  Report Type: Report from Study
  Country: CA (occurrence: CA)
  Receive Date: 20170719
  Receipt Date: 20170719
  Transmission Date: 20171127
  Serious: Yes (Hospitalization)
  Sender: FDA-Public Use
  Company Number: CA-JNJFOC-20170713051

PATIENT
  Sex: Male
  Weight: 88.6 kg

DRUGS (1)
  1. SIMPONI [Suspect]
     Active Substance: GOLIMUMAB
     Indication: RHEUMATOID ARTHRITIS
     Route: 058
     Dates: start: 20150206

REACTIONS (3)
  - Pneumonia [Unknown]
  - Pleurisy [Unknown]
  - Influenza [Unknown]

NARRATIVE: CASE EVENT DATE: 2017
